FAERS Safety Report 9087072 (Version 1)
Quarter: 2013Q1

REPORT INFORMATION
  Report Type: Spontaneous
  Country: NL (occurrence: NL)
  Receive Date: 20130131
  Receipt Date: 20130131
  Transmission Date: 20140127
  Serious: Yes (Other)
  Sender: FDA-Public Use
  Company Number: NL-PFIZER INC-2013035593

PATIENT
  Sex: Female

DRUGS (2)
  1. ADVIL [Suspect]
     Indication: MIGRAINE
     Dosage: UNK
  2. IMIGRAN [Concomitant]
     Dosage: UNK

REACTIONS (2)
  - Hymenolepiasis [Unknown]
  - Drug ineffective [Unknown]
